FAERS Safety Report 19361517 (Version 1)
Quarter: 2021Q2

REPORT INFORMATION
  Report Type: Spontaneous
  Country: US (occurrence: US)
  Receive Date: 20210603
  Receipt Date: 20210603
  Transmission Date: 20210717
  Serious: Yes (Other)
  Sender: FDA-Public Use
  Company Number: US-ASTRAZENECA-2021A480692

PATIENT
  Age: 662 Month
  Sex: Male
  Weight: 95.3 kg

DRUGS (3)
  1. ATORVASTATIN [Concomitant]
     Active Substance: ATORVASTATIN
     Indication: BLOOD CHOLESTEROL INCREASED
     Route: 048
     Dates: start: 201704
  2. BRILINTA [Suspect]
     Active Substance: TICAGRELOR
     Indication: MYOCARDIAL INFARCTION
     Dosage: DAILY
     Route: 048
     Dates: start: 201704, end: 202004
  3. BRILINTA [Suspect]
     Active Substance: TICAGRELOR
     Indication: STENT PLACEMENT
     Dosage: DAILY
     Route: 048
     Dates: start: 201704, end: 202004

REACTIONS (3)
  - Coronary artery occlusion [Not Recovered/Not Resolved]
  - Product use issue [Unknown]
  - Platelet adhesiveness increased [Not Recovered/Not Resolved]

NARRATIVE: CASE EVENT DATE: 201704
